FAERS Safety Report 13953837 (Version 1)
Quarter: 2017Q3

REPORT INFORMATION
  Report Type: Spontaneous
  Country: US (occurrence: US)
  Receive Date: 20170911
  Receipt Date: 20170911
  Transmission Date: 20171128
  Serious: No
  Sender: FDA-Public Use
  Company Number: US-PFIZER INC-2017391598

PATIENT
  Age: 62 Year
  Sex: Male

DRUGS (1)
  1. SUTENT [Suspect]
     Active Substance: SUNITINIB MALATE
     Indication: RENAL CANCER
     Dosage: 37.5 MG, CYCLIC (28 DAYS 2 WEEK OFF)
     Route: 048
     Dates: start: 20170830

REACTIONS (6)
  - Fatigue [Unknown]
  - Stomatitis [Unknown]
  - Weight decreased [Unknown]
  - Oral pain [Unknown]
  - Diarrhoea [Unknown]
  - Gastrointestinal disorder [Unknown]
